FAERS Safety Report 8974657 (Version 1)
Quarter: 2012Q4

REPORT INFORMATION
  Report Type: 
  Country: CO (occurrence: CO)
  Receive Date: 20121220
  Receipt Date: 20121220
  Transmission Date: 20130627
  Serious: Yes (Other)
  Sender: FDA-Public Use
  Company Number: CO-AMGEN-COLSP2012065975

PATIENT
  Age: 68 Year
  Sex: Male

DRUGS (11)
  1. ENBREL [Suspect]
     Indication: PSORIASIS
     Dosage: 50 mg, weekly
     Route: 058
     Dates: start: 201110, end: 201207
  2. FLUOXETINE [Concomitant]
     Indication: DEPRESSION
     Dosage: 2 capsules in the morning at 20 mg, 1x/day
     Route: 048
     Dates: start: 1980
  3. VALPROIC ACID [Concomitant]
     Dosage: 1 capsule at 250 mg, 1x/day
     Route: 048
     Dates: start: 1980
  4. AMLODIPINE [Concomitant]
     Indication: BLOOD PRESSURE INCREASED
     Dosage: 2 tablets at 5 mg, 1x/day
     Route: 048
     Dates: start: 1980
  5. FOLIC ACID [Concomitant]
     Dosage: 1 mg, UNK
     Route: 065
  6. TRAZODONE [Concomitant]
     Dosage: 50 mg, UNK
     Route: 065
  7. LORAZEPAM [Concomitant]
     Dosage: 2 mg, UNK
     Route: 065
  8. ASA [Concomitant]
     Dosage: UNK
     Route: 065
  9. LOVASTATIN [Concomitant]
     Dosage: 50 mg, UNK
     Route: 065
  10. LOSARTAN [Concomitant]
     Dosage: UNK
     Route: 065
  11. HYDROCORTISONE [Concomitant]
     Dosage: UNK
     Route: 065

REACTIONS (12)
  - Dizziness [Not Recovered/Not Resolved]
  - Muscle spasms [Not Recovered/Not Resolved]
  - Cough [Not Recovered/Not Resolved]
  - Gait disturbance [Not Recovered/Not Resolved]
  - Choking sensation [Not Recovered/Not Resolved]
  - Increased upper airway secretion [Not Recovered/Not Resolved]
  - Influenza [Not Recovered/Not Resolved]
  - Psoriasis [Not Recovered/Not Resolved]
  - Chest pain [Not Recovered/Not Resolved]
  - Gastroenteritis [Recovered/Resolved]
  - Tuberculin test positive [Not Recovered/Not Resolved]
  - Headache [Not Recovered/Not Resolved]
